FAERS Safety Report 5299601-0 (Version None)
Quarter: 2007Q2

REPORT INFORMATION
  Report Type: 
  Country: None (occurrence: None)
  Receive Date: 20070417
  Receipt Date: 20070404
  Transmission Date: 20071010
  Serious: Yes (Other)
  Sender: FDA-Public Use
  Company Number: PHEH2007US04443

PATIENT
  Age: 57 Year
  Sex: Female
  Weight: 63.492 kg

DRUGS (4)
  1. ZELNORM [Suspect]
     Indication: IRRITABLE BOWEL SYNDROME
     Dosage: 6 MG, BID
     Route: 048
     Dates: start: 20030901
  2. ZELNORM [Suspect]
     Dosage: 2 MG, BID
     Route: 048
     Dates: start: 20070301, end: 20070402
  3. PRILOSEC [Concomitant]
  4. IBUPROFEN [Concomitant]
     Indication: PAIN
     Dosage: 800 MG, UNK

REACTIONS (1)
  - HEART RATE INCREASED [None]
